FAERS Safety Report 6668708-5 (Version None)
Quarter: 2010Q2

REPORT INFORMATION
  Report Type: 
  Country: None (occurrence: None)
  Receive Date: 20100401
  Receipt Date: 20100322
  Transmission Date: 20101027
  Serious: Yes (Hospitalization)
  Sender: FDA-Public Use
  Company Number: 1000012642

PATIENT
  Age: 71 Year
  Sex: Male

DRUGS (4)
  1. DILTIAZEM HYDROCHLORIDE [Suspect]
     Indication: ARRHYTHMIA
     Dosage: 300 MG (300 MG,1 IN 1 D)
  2. METOPROLOL TARTRATE [Suspect]
     Indication: ARRHYTHMIA
     Dosage: 200 MG (100 MG,2 IN 1 D)
  3. VERAPAMIL [Suspect]
     Indication: ARRHYTHMIA
     Dosage: 240 MG (240 MNG
  4. ATENOLOL [Suspect]
     Indication: ARRHYTHMIA
     Dosage: 100 MG (100 MG,1 IN 1 D)

REACTIONS (3)
  - ATRIAL FIBRILLATION [None]
  - CARDIOGENIC SHOCK [None]
  - DRUG TOXICITY [None]
